FAERS Safety Report 7946531-9 (Version None)
Quarter: 2011Q4

REPORT INFORMATION
  Report Type: 
  Country: None (occurrence: None)
  Receive Date: 20111129
  Receipt Date: 20111121
  Transmission Date: 20120403
  Serious: Yes (Other)
  Sender: FDA-Public Use
  Company Number: US-JNJFOC-20111012527

PATIENT
  Sex: Male

DRUGS (7)
  1. CELEXA [Concomitant]
     Indication: DEPRESSION
     Dosage: IN AM
     Route: 065
  2. LAMICTAL [Concomitant]
     Indication: DRUG THERAPY
     Route: 065
  3. KLONOPIN [Concomitant]
     Indication: ANXIETY
     Route: 065
  4. INVEGA SUSTENNA [Suspect]
     Route: 030
     Dates: start: 20111012, end: 20111001
  5. TRILEPTAL [Concomitant]
     Indication: DRUG THERAPY
     Route: 065
  6. INVEGA SUSTENNA [Suspect]
     Indication: MAJOR DEPRESSION
     Route: 030
     Dates: start: 20111019
  7. PRAZOSIN HCL [Concomitant]
     Indication: NIGHTMARE
     Route: 065

REACTIONS (2)
  - MUSCULAR WEAKNESS [None]
  - INJECTION SITE NODULE [None]
